FAERS Safety Report 11070349 (Version 8)
Quarter: 2016Q1

REPORT INFORMATION
  Report Type: Report from Study
  Country: AU (occurrence: AU)
  Receive Date: 20150427
  Receipt Date: 20160209
  Transmission Date: 20160525
  Serious: Yes (Hospitalization, Other)
  Sender: FDA-Public Use
  Company Number: AU-GILEAD-2015-0150540

PATIENT
  Age: 62 Year
  Sex: Male
  Weight: 83.5 kg

DRUGS (32)
  1. IDELALISIB [Suspect]
     Active Substance: IDELALISIB
     Indication: NON-HODGKIN^S LYMPHOMA UNSPECIFIED HISTOLOGY INDOLENT
     Dosage: 150 MG, BID
     Route: 048
     Dates: start: 20141126, end: 20150420
  2. RITUXIMAB [Suspect]
     Active Substance: RITUXIMAB
     Indication: NON-HODGKIN^S LYMPHOMA UNSPECIFIED HISTOLOGY INDOLENT
     Dosage: 850 MG, CYCLICAL
     Route: 042
     Dates: start: 20150401, end: 20150401
  3. CETIRIZINE [Concomitant]
     Active Substance: CETIRIZINE HYDROCHLORIDE
     Indication: PREMEDICATION
     Dosage: UNK
     Route: 048
     Dates: start: 20141126, end: 20150603
  4. MAXOLON [Concomitant]
     Active Substance: METOCLOPRAMIDE HYDROCHLORIDE
     Indication: NAUSEA
     Dosage: UNK
     Route: 042
     Dates: start: 20150428, end: 20150428
  5. MAGNESIUM SULFATE. [Concomitant]
     Active Substance: MAGNESIUM SULFATE
     Indication: BLOOD MAGNESIUM DECREASED
     Dosage: UNK
     Dates: start: 20150424, end: 20150424
  6. RANITIDINE [Concomitant]
     Active Substance: RANITIDINE\RANITIDINE HYDROCHLORIDE
     Indication: GASTROOESOPHAGEAL REFLUX DISEASE
     Dosage: UNK
     Route: 048
     Dates: start: 20150418, end: 20150418
  7. ALLOPURINOL. [Concomitant]
     Active Substance: ALLOPURINOL
     Indication: PROPHYLAXIS
     Dosage: UNK
     Route: 048
     Dates: start: 20141128, end: 2015
  8. MAGNESIUM SULFATE. [Concomitant]
     Active Substance: MAGNESIUM SULFATE
     Dosage: UNK
     Dates: start: 20150502, end: 20150502
  9. ONDANSETRON [Concomitant]
     Active Substance: ONDANSETRON
     Indication: NAUSEA
     Dosage: UNK
     Route: 042
     Dates: start: 20150427, end: 20150428
  10. BENDAMUSTINE [Suspect]
     Active Substance: BENDAMUSTINE
     Indication: NON-HODGKIN^S LYMPHOMA UNSPECIFIED HISTOLOGY INDOLENT
     Dosage: 203.4 MG, CYCLICAL
     Route: 042
     Dates: start: 20150401, end: 20150401
  11. TAZOCIN [Suspect]
     Active Substance: PIPERACILLIN SODIUM\TAZOBACTAM SODIUM
     Indication: PYREXIA
     Dosage: UNK
     Route: 042
     Dates: start: 20150108, end: 20150108
  12. TAZOCIN [Suspect]
     Active Substance: PIPERACILLIN SODIUM\TAZOBACTAM SODIUM
     Indication: PNEUMONIA BACTERIAL
     Dosage: UNK
     Route: 042
     Dates: start: 20150420, end: 20150504
  13. BACTRIM DS [Concomitant]
     Active Substance: SULFAMETHOXAZOLE\TRIMETHOPRIM
     Dosage: UNK
     Route: 048
     Dates: start: 20151127
  14. BENDAMUSTINE [Suspect]
     Active Substance: BENDAMUSTINE
     Dosage: 203.4 MG, CYCLICAL
     Route: 042
     Dates: end: 20150604
  15. LASIX [Concomitant]
     Active Substance: FUROSEMIDE
     Indication: OEDEMA
     Dosage: UNK
     Route: 048
     Dates: start: 20150501, end: 20150501
  16. ZOTON [Concomitant]
     Active Substance: LANSOPRAZOLE
     Indication: GASTROOESOPHAGEAL REFLUX DISEASE
     Dosage: UNK
     Dates: start: 20130706
  17. IVIGLOB EX [Concomitant]
     Active Substance: HUMAN IMMUNOGLOBULIN G
     Indication: HYPOGAMMAGLOBULINAEMIA
     Dosage: UNK, Q1MONTH
     Route: 042
     Dates: start: 201412
  18. FILGRASTIM [Concomitant]
     Active Substance: FILGRASTIM
     Indication: INFECTION PROPHYLAXIS
     Dosage: UNK
     Route: 058
     Dates: start: 20150504, end: 20150512
  19. LASIX [Concomitant]
     Active Substance: FUROSEMIDE
     Dosage: UNK
     Route: 042
     Dates: start: 20150505, end: 20150505
  20. RITUXIMAB [Suspect]
     Active Substance: RITUXIMAB
     Dosage: 850 MG, CYCLICAL
     Route: 042
     Dates: end: 20150603
  21. LOPERAMIDE [Concomitant]
     Active Substance: LOPERAMIDE
     Indication: DIARRHOEA
     Dosage: UNK
     Route: 048
     Dates: start: 20150423, end: 20150510
  22. PARACETAMOL [Concomitant]
     Active Substance: ACETAMINOPHEN
     Indication: PREMEDICATION
     Dosage: UNK
     Route: 048
     Dates: start: 20141126, end: 20150603
  23. PARACETAMOL [Concomitant]
     Active Substance: ACETAMINOPHEN
     Indication: PAIN
  24. PARACETAMOL [Concomitant]
     Active Substance: ACETAMINOPHEN
     Indication: PYREXIA
  25. MAXOLON [Concomitant]
     Active Substance: METOCLOPRAMIDE HYDROCHLORIDE
     Indication: VOMITING
  26. RANITIDINE [Concomitant]
     Active Substance: RANITIDINE\RANITIDINE HYDROCHLORIDE
     Dosage: UNK
     Route: 048
     Dates: start: 20150426, end: 20150429
  27. ONDANSETRON [Concomitant]
     Active Substance: ONDANSETRON
     Indication: VOMITING
     Dosage: UNK
     Route: 048
     Dates: start: 20150504, end: 20150504
  28. LASIX [Concomitant]
     Active Substance: FUROSEMIDE
     Indication: PULMONARY OEDEMA
     Dosage: UNK
     Route: 042
     Dates: start: 20150430, end: 20150430
  29. DEXAMETHASONE. [Concomitant]
     Active Substance: DEXAMETHASONE
     Indication: PREMEDICATION
     Dosage: UNK
     Route: 048
     Dates: start: 20141128, end: 20150604
  30. HYDROCORTISONE. [Concomitant]
     Active Substance: HYDROCORTISONE
     Indication: PREMEDICATION
     Dosage: UNK
     Route: 042
     Dates: start: 20141126, end: 20150603
  31. MAGNESIUM SULFATE. [Concomitant]
     Active Substance: MAGNESIUM SULFATE
     Indication: ATRIAL FIBRILLATION
     Dosage: UNK
     Route: 042
     Dates: start: 20150421, end: 20150421
  32. HEPARIN [Concomitant]
     Active Substance: HEPARIN SODIUM
     Indication: THROMBOSIS PROPHYLAXIS
     Dosage: UNK
     Route: 058
     Dates: start: 20150425, end: 20150426

REACTIONS (6)
  - Hypoxia [Unknown]
  - Cytomegalovirus viraemia [Recovered/Resolved]
  - Pneumonia bacterial [Unknown]
  - Herpes simplex [Recovered/Resolved]
  - Cholestasis [Unknown]
  - Cytomegalovirus colitis [Recovered/Resolved]

NARRATIVE: CASE EVENT DATE: 20150415
